FAERS Safety Report 9301659 (Version 1)
Quarter: 2013Q2

REPORT INFORMATION
  Report Type: Spontaneous
  Country: US (occurrence: None)
  Receive Date: 20130520
  Receipt Date: 20130520
  Transmission Date: 20140414
  Serious: Yes (Other)
  Sender: FDA-Public Use
  Company Number: None

PATIENT
  Age: 57 Year
  Sex: Male
  Weight: 83.92 kg

DRUGS (1)
  1. FENTANYL [Suspect]
     Indication: PAIN MANAGEMENT
     Dosage: 100MCG/HR EVERY 72HRS TRANSDERMAL
     Route: 062
     Dates: start: 20130207

REACTIONS (4)
  - Application site rash [None]
  - Erythema [None]
  - Pruritus [None]
  - Discomfort [None]
